FAERS Safety Report 14475807 (Version 1)
Quarter: 2018Q1

REPORT INFORMATION
  Report Type: Spontaneous
  Country: DK (occurrence: DK)
  Receive Date: 20180201
  Receipt Date: 20180201
  Transmission Date: 20180509
  Serious: Yes (Other)
  Sender: FDA-Public Use
  Company Number: PHHY2018DK014253

PATIENT
  Sex: Male

DRUGS (2)
  1. HYDROCHLOROTHIAZIDE SANDOZ [Suspect]
     Active Substance: HYDROCHLOROTHIAZIDE
     Indication: CONGENITAL NEPHROGENIC DIABETES INSIPIDUS
     Dosage: 3 MG/KG, QD
     Route: 048
  2. AMILORIDE [Concomitant]
     Active Substance: AMILORIDE
     Indication: CONGENITAL NEPHROGENIC DIABETES INSIPIDUS
     Dosage: 0.3 MG/KG, QD
     Route: 048

REACTIONS (1)
  - Hypokalaemia [Unknown]
